FAERS Safety Report 4510458-5 (Version None)
Quarter: 2004Q4

REPORT INFORMATION
  Report Type: 
  Country: None (occurrence: None)
  Receive Date: 20041124
  Receipt Date: 20041108
  Transmission Date: 20050328
  Serious: Yes (Other)
  Sender: FDA-Public Use
  Company Number: F04200400294

PATIENT
  Age: 72 Year
  Sex: Female

DRUGS (8)
  1. FONDAPARINUX SODIUM [Suspect]
     Dosage: 2.5MG PER DAY
     Route: 058
     Dates: start: 20040514, end: 20040523
  2. HORMONE REPLACEMENT THERAPY [Concomitant]
  3. INSULIN [Concomitant]
     Route: 058
  4. AMARYL [Concomitant]
     Route: 048
  5. BELOC ZOK [Concomitant]
     Route: 048
  6. DECORTIN H [Concomitant]
     Dosage: 5MG PER DAY
     Route: 048
  7. VIOXX [Concomitant]
     Route: 048
     Dates: start: 20040514, end: 20040526
  8. NAROPIN [Concomitant]
     Route: 042
     Dates: start: 20040514, end: 20040526

REACTIONS (3)
  - DIPLOPIA [None]
  - SPEECH DISORDER [None]
  - TRANSIENT ISCHAEMIC ATTACK [None]
